FAERS Safety Report 4804741-3 (Version None)
Quarter: 2005Q4

REPORT INFORMATION
  Report Type: 
  Country: None (occurrence: None)
  Receive Date: 20051020
  Receipt Date: 20051014
  Transmission Date: 20060501
  Serious: Yes (Death, Hospitalization)
  Sender: FDA-Public Use
  Company Number: PHBS2005US15393

PATIENT
  Age: 46 Year
  Sex: Male

DRUGS (1)
  1. OXCARBAZEPINE [Suspect]
     Dosage: 11250 MG, ONCE/SINGLE
     Route: 048

REACTIONS (5)
  - BRADYCARDIA [None]
  - CARDIAC ARREST [None]
  - HYPOTENSION [None]
  - INTENTIONAL DRUG MISUSE [None]
  - RESUSCITATION [None]
